FAERS Safety Report 5339344-8 (Version None)
Quarter: 2007Q2

REPORT INFORMATION
  Report Type: 
  Country: None (occurrence: None)
  Receive Date: 20070322
  Receipt Date: 20061201
  Transmission Date: 20071010
  Serious: Yes (Other)
  Sender: FDA-Public Use
  Company Number: 200614852BCC

PATIENT
  Sex: Male
  Weight: 74.8435 kg

DRUGS (1)
  1. ALEVE [Suspect]
     Indication: BACK PAIN
     Dosage: 220 MG, QD, ORAL A FEW WEEKS
     Route: 048

REACTIONS (1)
  - BLOOD URINE PRESENT [None]
